FAERS Safety Report 16683452 (Version 1)
Quarter: 2019Q3

REPORT INFORMATION
  Report Type: Spontaneous
  Country: GB (occurrence: GB)
  Receive Date: 20190808
  Receipt Date: 20190808
  Transmission Date: 20191004
  Serious: Yes (Hospitalization)
  Sender: FDA-Public Use
  Company Number: GB-GW PHARMA-201907GBGW2715

PATIENT

DRUGS (1)
  1. EPIDIOLEX [Suspect]
     Active Substance: CANNABIDIOL
     Indication: SEIZURE
     Dosage: UNK
     Route: 048
     Dates: start: 201808, end: 2019

REACTIONS (4)
  - Drug ineffective [Unknown]
  - Feeding disorder [Unknown]
  - Gait inability [Unknown]
  - Mutism [Unknown]

NARRATIVE: CASE EVENT DATE: 201901
